FAERS Safety Report 10528053 (Version 3)
Quarter: 2014Q4

REPORT INFORMATION
  Report Type: Report from Study
  Country: HU (occurrence: HU)
  Receive Date: 20141020
  Receipt Date: 20141112
  Transmission Date: 20150528
  Serious: Yes (Hospitalization)
  Sender: FDA-Public Use
  Company Number: HU-GLAXOSMITHKLINE-Z0021425F

PATIENT
  Age: 57 Year
  Sex: Male
  Weight: 160 kg

DRUGS (2)
  1. METRONIDAZOL [Suspect]
     Active Substance: METRONIDAZOLE
     Route: 048
     Dates: start: 20131108, end: 20131127
  2. PAZOPANIB [Suspect]
     Active Substance: PAZOPANIB
     Indication: RENAL CELL CARCINOMA
     Dosage: 600 MG, QD
     Route: 048
     Dates: start: 20121009, end: 20131010

REACTIONS (1)
  - Colitis [Recovered/Resolved]

NARRATIVE: CASE EVENT DATE: 20131108
